FAERS Safety Report 6883094-3 (Version None)
Quarter: 2010Q3

REPORT INFORMATION
  Report Type: 
  Country: None (occurrence: None)
  Receive Date: 20100729
  Receipt Date: 20100723
  Transmission Date: 20110219
  Serious: Yes (Other)
  Sender: FDA-Public Use
  Company Number: US-BRISTOL-MYERS SQUIBB COMPANY-15206899

PATIENT
  Sex: Female

DRUGS (2)
  1. COUMADIN [Suspect]
  2. PLAVIX [Suspect]

REACTIONS (5)
  - CONTUSION [None]
  - DYSPNOEA [None]
  - HEADACHE [None]
  - RETINAL VASCULAR THROMBOSIS [None]
  - SWELLING [None]
